FAERS Safety Report 9281734 (Version 2)
Quarter: 2013Q3

REPORT INFORMATION
  Report Type: Spontaneous
  Country: AU (occurrence: AU)
  Receive Date: 20130510
  Receipt Date: 20130717
  Transmission Date: 20140515
  Serious: Yes (Death)
  Sender: FDA-Public Use
  Company Number: AU-B.I. PHARMACEUTICALS,INC./RIDGEFIELD-2013-AU-00531AU

PATIENT
  Sex: Male
  Weight: 110 kg

DRUGS (3)
  1. PRADAXA [Suspect]
  2. PROTON PUMP INHIBITOR [OR H2 BLOCKER] [Concomitant]
  3. [PROTON PUMP INHIBITOR OR] H2 BLOCKER [Concomitant]

REACTIONS (1)
  - Death [Fatal]
